FAERS Safety Report 8075457-8 (Version None)
Quarter: 2012Q1

REPORT INFORMATION
  Report Type: 
  Country: None (occurrence: None)
  Receive Date: 20120120
  Receipt Date: 20120111
  Transmission Date: 20120608
  Serious: Yes (Other)
  Sender: FDA-Public Use
  Company Number: AUR-APL-2011-06188

PATIENT
  Age: 58 Year
  Sex: Female

DRUGS (3)
  1. ATARAX [Suspect]
     Indication: SUICIDE ATTEMPT
     Dosage: (1875 MG, TOTAL), ORAL
     Route: 048
     Dates: start: 20111201
  2. MIRTAZAPINE [Suspect]
     Indication: SUICIDE ATTEMPT
     Dosage: (750 MG, TOTAL), ORAL
     Route: 048
     Dates: start: 20111201
  3. HYPNOTICS AND SEDATIVES (HYPNOTICS AND SEDATIVES) [Suspect]
     Indication: SUICIDE ATTEMPT
     Dosage: (10 DOSAGE FORMS), ORAL
     Route: 048

REACTIONS (6)
  - SYSTOLIC HYPERTENSION [None]
  - HALLUCINATION [None]
  - TOXICITY TO VARIOUS AGENTS [None]
  - SOMNOLENCE [None]
  - SUICIDE ATTEMPT [None]
  - SPEECH DISORDER [None]
